FAERS Safety Report 9814710 (Version 1)
Quarter: 2014Q1

REPORT INFORMATION
  Report Type: Spontaneous
  Country: US (occurrence: US)
  Receive Date: 20140113
  Receipt Date: 20140113
  Transmission Date: 20141002
  Serious: Yes (Disabling, Other)
  Sender: FDA-Public Use
  Company Number: US-SANOFI-AVENTIS-2013SA007017

PATIENT
  Age: 72 Year
  Sex: Female

DRUGS (3)
  1. DOCETAXEL [Suspect]
     Indication: INVASIVE LOBULAR BREAST CARCINOMA
     Route: 065
  2. TRASTUZUMAB [Suspect]
     Indication: INVASIVE LOBULAR BREAST CARCINOMA
     Route: 065
  3. CARBOPLATIN [Suspect]
     Indication: INVASIVE LOBULAR BREAST CARCINOMA
     Route: 065

REACTIONS (3)
  - Gait disturbance [Unknown]
  - Asthenia [Unknown]
  - Haemoglobin abnormal [Unknown]
